FAERS Safety Report 24079818 (Version 1)
Quarter: 2024Q3

REPORT INFORMATION
  Report Type: Spontaneous
  Country: ZA (occurrence: None)
  Receive Date: 20240711
  Receipt Date: 20240711
  Transmission Date: 20241017
  Serious: Yes (Other)
  Sender: ASTRAZENECA
  Company Number: 2024A154225

PATIENT
  Age: 81 Year
  Sex: Female

DRUGS (10)
  1. BUDESONIDE\FORMOTEROL [Suspect]
     Active Substance: BUDESONIDE\FORMOTEROL
     Indication: Asthma
     Dosage: 60 DOSE 160/4.5 MCG, 60 MG, UNKNOWN UNKNOWN
     Route: 055
  2. VERAPAMIL HYDROCHLORIDE [Concomitant]
     Active Substance: VERAPAMIL HYDROCHLORIDE
     Indication: Hypertension
     Route: 048
  3. OMEPRAZOLE [Concomitant]
     Active Substance: OMEPRAZOLE
     Indication: Ulcer
     Route: 048
  4. BISOPROLOL FUMARATE [Concomitant]
     Active Substance: BISOPROLOL FUMARATE
     Indication: Hypertension
     Route: 048
  5. BONIVA [Concomitant]
     Active Substance: IBANDRONATE SODIUM
     Indication: Osteosis
     Route: 048
  6. LEVOTHYROXINE SODIUM [Concomitant]
     Active Substance: LEVOTHYROXINE SODIUM
     Indication: Hypothyroidism
     Route: 048
  7. ROSUVASTATIN [Concomitant]
     Active Substance: ROSUVASTATIN
     Indication: Blood cholesterol
     Route: 048
  8. ALLOPURINOL [Concomitant]
     Active Substance: ALLOPURINOL
     Indication: Gout
     Route: 048
  9. TAMBOCOR [Concomitant]
     Active Substance: FLECAINIDE ACETATE
     Indication: Arrhythmia
     Route: 048
  10. PLENISH-K SR [Concomitant]
     Indication: Hypokalaemia
     Route: 048

REACTIONS (2)
  - Blindness [Unknown]
  - Visual impairment [Unknown]
